FAERS Safety Report 17740896 (Version 1)
Quarter: 2020Q2

REPORT INFORMATION
  Report Type: Spontaneous
  Country: US (occurrence: US)
  Receive Date: 20200504
  Receipt Date: 20200504
  Transmission Date: 20200714
  Serious: Yes (Life-Threatening, Hospitalization)
  Sender: FDA-Public Use
  Company Number: None

PATIENT
  Age: 67 Year
  Sex: Female
  Weight: 82.3 kg

DRUGS (8)
  1. LEVOFLOXACIN. [Suspect]
     Active Substance: LEVOFLOXACIN
     Indication: PNEUMONIA
     Route: 048
  2. HYDROXYZINE 25MG [Concomitant]
     Dates: start: 20200422
  3. ALBUTEROL INHALER [Concomitant]
     Active Substance: ALBUTEROL
     Dates: start: 20200422
  4. TRAZODONE [Concomitant]
     Active Substance: TRAZODONE HYDROCHLORIDE
     Dates: start: 20200422
  5. PYRIDOSTIGMINE 60MG [Concomitant]
     Dates: start: 20200406
  6. FLUOXETINE [Concomitant]
     Active Substance: FLUOXETINE HYDROCHLORIDE
     Dates: start: 20190528
  7. OMEPRAZOLE 20MG [Concomitant]
     Active Substance: OMEPRAZOLE
     Dates: start: 20200402
  8. ZOFRAN ODT 4MG [Concomitant]
     Dates: start: 20200422

REACTIONS (6)
  - Muscular weakness [None]
  - Tachypnoea [None]
  - Dyspnoea [None]
  - Myasthenia gravis [None]
  - Tachycardia [None]
  - Therapy interrupted [None]

NARRATIVE: CASE EVENT DATE: 20200501
